FAERS Safety Report 24449889 (Version 1)
Quarter: 2024Q4

REPORT INFORMATION
  Report Type: Spontaneous
  Country: US (occurrence: None)
  Receive Date: 20241016
  Receipt Date: 20241016
  Transmission Date: 20250115
  Serious: Yes (Life-Threatening, Hospitalization)
  Sender: Public
  Company Number: None

PATIENT
  Age: 76 Year
  Sex: Male
  Weight: 166 kg

DRUGS (2)
  1. SULFAMETHIZOLE\TRIMETHOPRIM [Suspect]
     Active Substance: SULFAMETHIZOLE\TRIMETHOPRIM
     Indication: Urinary tract infection
  2. VALSARTAN [Suspect]
     Active Substance: VALSARTAN
     Indication: Hypertension
     Dosage: FREQUENCY : DAILY;?
     Route: 048
     Dates: end: 20231227

REACTIONS (9)
  - Metabolic acidosis [None]
  - Hyperkalaemia [None]
  - Acute kidney injury [None]
  - Asthenia [None]
  - Renal tubular acidosis [None]
  - Acute kidney injury [None]
  - Urinary retention [None]
  - Hypovolaemia [None]
  - Urinary tract obstruction [None]

NARRATIVE: CASE EVENT DATE: 20231227
